FAERS Safety Report 6509938-2 (Version None)
Quarter: 2009Q4

REPORT INFORMATION
  Report Type: 
  Country: None (occurrence: None)
  Receive Date: 20091222
  Receipt Date: 20091214
  Transmission Date: 20100525
  Serious: Yes (Other)
  Sender: FDA-Public Use
  Company Number: PHHY2009AT55099

PATIENT
  Sex: Female

DRUGS (2)
  1. RASILEZ [Suspect]
     Dosage: 300 MG, UNK
     Dates: start: 20090801
  2. LOVENOX [Concomitant]

REACTIONS (8)
  - ATRIAL FIBRILLATION [None]
  - BLOOD PRESSURE FLUCTUATION [None]
  - FEELING OF BODY TEMPERATURE CHANGE [None]
  - GENERAL PHYSICAL CONDITION ABNORMAL [None]
  - MENTAL DISORDER [None]
  - PAIN [None]
  - SLEEP DISORDER [None]
  - SYNCOPE [None]
